FAERS Safety Report 17554505 (Version 1)
Quarter: 2020Q1

REPORT INFORMATION
  Report Type: Spontaneous
  Country: US (occurrence: US)
  Receive Date: 20200318
  Receipt Date: 20200318
  Transmission Date: 20200409
  Serious: Yes (Hospitalization, Other)
  Sender: FDA-Public Use
  Company Number: US-DRREDDYS-USA/USA/20/0120679

PATIENT
  Age: 56 Year
  Sex: Male

DRUGS (7)
  1. OLANZAPINE ODT 5 MG [Suspect]
     Active Substance: OLANZAPINE
     Indication: BIPOLAR DISORDER
  2. TACROLIMUS. [Suspect]
     Active Substance: TACROLIMUS
     Indication: IMMUNOSUPPRESSANT DRUG THERAPY
     Route: 048
  3. QUETIAPINE FUMARATE TABLETS [Suspect]
     Active Substance: QUETIAPINE FUMARATE
     Indication: BIPOLAR DISORDER
     Route: 048
  4. OLANZAPINE ODT 5 MG [Suspect]
     Active Substance: OLANZAPINE
     Dosage: INCREASED
  5. VALPROIC ACID. [Concomitant]
     Active Substance: VALPROIC ACID
     Dosage: TITRATED
     Route: 048
  6. VALPROIC ACID. [Concomitant]
     Active Substance: VALPROIC ACID
     Indication: BIPOLAR DISORDER
     Route: 048
  7. OLANZAPINE ODT 5 MG [Suspect]
     Active Substance: OLANZAPINE
     Dosage: INCREASED

REACTIONS (5)
  - Drug intolerance [Unknown]
  - Fatigue [Unknown]
  - Bipolar disorder [Recovering/Resolving]
  - Somnolence [Unknown]
  - Salivary hypersecretion [Unknown]
